FAERS Safety Report 5757168-4 (Version None)
Quarter: 2008Q2

REPORT INFORMATION
  Report Type: 
  Country: None (occurrence: None)
  Receive Date: 20080603
  Receipt Date: 20080529
  Transmission Date: 20081010
  Serious: Yes (Life-Threatening)
  Sender: FDA-Public Use
  Company Number: FR-JNJFOC-20080505801

PATIENT
  Age: 84 Year
  Sex: Female

DRUGS (9)
  1. OFLOCET [Suspect]
     Indication: URINARY TRACT INFECTION
     Route: 048
  2. PYOSTACINE [Suspect]
     Indication: ERYSIPELAS
     Route: 048
  3. MOPRAL [Suspect]
     Indication: GASTRIC ULCER
     Route: 048
  4. LOVENOX [Concomitant]
     Route: 058
  5. LOVENOX [Concomitant]
     Indication: DEEP VEIN THROMBOSIS
     Route: 058
  6. TRIATEC [Concomitant]
     Route: 048
  7. GLUCOPHAGE [Concomitant]
     Route: 048
  8. DUPHALAC [Concomitant]
     Route: 048
  9. CELIPROLOL [Concomitant]
     Route: 048

REACTIONS (5)
  - DEHYDRATION [None]
  - HYPERTHERMIA [None]
  - MALNUTRITION [None]
  - TOXIC EPIDERMAL NECROLYSIS [None]
  - TOXIC SKIN ERUPTION [None]
